FAERS Safety Report 9402374 (Version 5)
Quarter: 2013Q4

REPORT INFORMATION
  Report Type: Report from Study
  Country: CZ (occurrence: CZ)
  Receive Date: 20130716
  Receipt Date: 20131003
  Transmission Date: 20140711
  Serious: Yes (Hospitalization)
  Sender: FDA-Public Use
  Company Number: CZ-BAYER-2013-085843

PATIENT
  Age: 44 Year
  Sex: Male
  Weight: 93.5 kg

DRUGS (24)
  1. REGORAFENIB [Suspect]
     Indication: COLORECTAL CANCER
     Dosage: 160 MG, QD
     Route: 048
     Dates: start: 20121029, end: 20121118
  2. REGORAFENIB [Suspect]
     Indication: COLORECTAL CANCER
     Dosage: 160 MG, QD
     Route: 048
     Dates: start: 20121127, end: 20121209
  3. REGORAFENIB [Suspect]
     Indication: COLORECTAL CANCER
     Dosage: 160 MG, QD
     Route: 048
     Dates: start: 20121224, end: 20130114
  4. REGORAFENIB [Suspect]
     Indication: COLORECTAL CANCER
     Dosage: 160 MG, QD
     Route: 048
     Dates: start: 20130122, end: 20130211
  5. REGORAFENIB [Suspect]
     Indication: COLORECTAL CANCER
     Dosage: 160 MG, QD
     Route: 048
     Dates: start: 20130219, end: 20130311
  6. REGORAFENIB [Suspect]
     Indication: COLORECTAL CANCER
     Dosage: 160 MG, QD
     Route: 048
     Dates: start: 20130319, end: 20130408
  7. REGORAFENIB [Suspect]
     Indication: COLORECTAL CANCER
     Dosage: 160 MG, QD
     Route: 048
     Dates: start: 20130415, end: 20130506
  8. REGORAFENIB [Suspect]
     Indication: COLORECTAL CANCER
     Dosage: 160 MG, QD
     Route: 048
     Dates: start: 20130514, end: 20130603
  9. REGORAFENIB [Suspect]
     Indication: COLORECTAL CANCER
     Dosage: 160 MG, QD, CYCLE 9
     Route: 048
     Dates: start: 20130611, end: 20130701
  10. REGORAFENIB [Suspect]
     Indication: COLORECTAL CANCER
     Dosage: 160 MG, QD, CYCLE 9
     Route: 048
     Dates: start: 20130611, end: 20130701
  11. REGORAFENIB [Suspect]
     Indication: COLORECTAL CANCER
     Dosage: 160 MG, QD, CYCLE 9
     Route: 048
     Dates: start: 20130611, end: 20130701
  12. REGORAFENIB [Suspect]
     Indication: COLORECTAL CANCER
     Dosage: 160 MG, QD, CYCLE 10
     Route: 048
     Dates: start: 20130715, end: 20130805
  13. REGORAFENIB [Suspect]
     Indication: COLORECTAL CANCER
     Dosage: 160 MG DAILY, CYCLE 11
     Dates: start: 20130813, end: 20130902
  14. FRAXIPARIN [Concomitant]
     Indication: CENTRAL VENOUS CATHETERISATION
     Dosage: 0.8 ML, QD
     Route: 058
     Dates: start: 20110405, end: 20130627
  15. WARFARIN [Concomitant]
     Indication: CENTRAL VENOUS CATHETERISATION
     Dosage: 5 MG, QD
     Route: 048
     Dates: start: 20130628, end: 20130710
  16. NIMESIL [Concomitant]
     Indication: ARTHRALGIA
     Dosage: 100 MG, PRN
     Dates: start: 20121112
  17. ZOMETA [Concomitant]
     Indication: PROPHYLAXIS
     Dosage: 4 MG, Q1MON
     Route: 042
     Dates: start: 20110719
  18. ESSENTIALE [VITAMINS NOS] [Concomitant]
     Indication: PROPHYLAXIS
     Dosage: 300 MG, BID
     Route: 048
     Dates: start: 20130415
  19. ALPRAZOLAM [Concomitant]
     Indication: PROPHYLAXIS
     Dosage: 0.25 MG, QD
     Route: 048
     Dates: start: 20130415
  20. CALTRATE PLUS [Concomitant]
     Indication: OSTEOPOROSIS PROPHYLAXIS
     Dosage: 600 MG, QD
     Route: 048
     Dates: start: 20130513
  21. DIAZEPAM [Concomitant]
     Indication: PROPHYLAXIS
     Dosage: UNK
     Route: 048
     Dates: start: 20130910, end: 20130910
  22. TRAMAL [Concomitant]
     Indication: URINARY TRACT OBSTRUCTION
     Dosage: UNK
     Dates: start: 20130911, end: 20130911
  23. TRAMAL [Concomitant]
     Indication: PAIN PROPHYLAXIS
     Dosage: UNK
     Dates: start: 20130914, end: 20130914
  24. TRAMAL [Concomitant]
     Indication: BACK PAIN
     Dosage: 50 MG DAILY
     Route: 042
     Dates: start: 20130711, end: 20130712

REACTIONS (1)
  - Thrombophlebitis superficial [Not Recovered/Not Resolved]
